FAERS Safety Report 9306439 (Version 2)
Quarter: 2013Q3

REPORT INFORMATION
  Report Type: Spontaneous
  Country: US (occurrence: US)
  Receive Date: 20130523
  Receipt Date: 20130708
  Transmission Date: 20140515
  Serious: No
  Sender: FDA-Public Use
  Company Number: US-009507513-1305USA013496

PATIENT
  Age: 79 Year
  Sex: Male

DRUGS (3)
  1. AZASITE [Suspect]
     Indication: EYE ALLERGY
     Dosage: ONE DROP EACH EYE DAILY (ALSO REPORTED AS ^AS NEEDED^)
     Route: 047
  2. AZASITE [Suspect]
     Indication: BLEPHARITIS
  3. AZASITE [Suspect]
     Indication: EYELID INFECTION

REACTIONS (2)
  - Drug dose omission [Unknown]
  - Product quality issue [Unknown]
